FAERS Safety Report 5724980-7 (Version None)
Quarter: 2008Q2

REPORT INFORMATION
  Report Type: 
  Country: None (occurrence: None)
  Receive Date: 20080429
  Receipt Date: 20080414
  Transmission Date: 20081010
  Serious: Yes (Other)
  Sender: FDA-Public Use
  Company Number: BE-LLY-EWC990403119

PATIENT
  Age: 68 Year
  Sex: Female
  Weight: 47 kg

DRUGS (9)
  1. PERMAX [Suspect]
     Indication: PARKINSON'S DISEASE
     Dosage: 2 MG;TID;PO
     Route: 048
     Dates: start: 19980301, end: 19990414
  2. PROLOPA [Concomitant]
  3. PARLODEL [Concomitant]
  4. ELDEPRYL [Concomitant]
  5. EMCONCOR [Concomitant]
  6. NAPROSYN [Concomitant]
  7. ESTROGEL [Concomitant]
  8. DIOVANE [Concomitant]
  9. AMLODPINE [Concomitant]

REACTIONS (10)
  - ACUTE PULMONARY OEDEMA [None]
  - AORTIC VALVE INCOMPETENCE [None]
  - CONDITION AGGRAVATED [None]
  - DYSKINESIA [None]
  - LEFT ATRIAL DILATATION [None]
  - MITRAL VALVE INCOMPETENCE [None]
  - OVERDOSE [None]
  - PARKINSON'S DISEASE [None]
  - PULMONARY HYPERTENSION [None]
  - TRICUSPID VALVE STENOSIS [None]
